FAERS Safety Report 23148755 (Version 2)
Quarter: 2023Q4

REPORT INFORMATION
  Report Type: Spontaneous
  Country: BR (occurrence: BR)
  Receive Date: 20231106
  Receipt Date: 20231204
  Transmission Date: 20240109
  Serious: Yes (Other)
  Sender: FDA-Public Use
  Company Number: BR-DSJP-DSE-2023-144968

PATIENT
  Age: 46 Year
  Sex: Male
  Weight: 82 kg

DRUGS (3)
  1. ENHERTU [Suspect]
     Active Substance: FAM-TRASTUZUMAB DERUXTECAN-NXKI
     Indication: HER2 positive breast cancer
     Dosage: UNK
     Route: 065
  2. ENHERTU [Suspect]
     Active Substance: FAM-TRASTUZUMAB DERUXTECAN-NXKI
     Dosage: DOSE REDUCED UPTO 3.2 MG/KG
     Route: 065
  3. DEXAMETHASONE [Concomitant]
     Active Substance: DEXAMETHASONE
     Indication: HER2 positive breast cancer
     Dosage: UNK
     Route: 065

REACTIONS (10)
  - Hemiparesis [Not Recovered/Not Resolved]
  - Dysarthria [Not Recovered/Not Resolved]
  - Disease progression [Not Recovered/Not Resolved]
  - Seizure [Unknown]
  - Brain oedema [Unknown]
  - Radiation necrosis [Unknown]
  - Infection [Unknown]
  - Nausea [Recovering/Resolving]
  - Gastrointestinal toxicity [Recovering/Resolving]
  - Haematotoxicity [Recovering/Resolving]
